FAERS Safety Report 6937038-6 (Version None)
Quarter: 2010Q3

REPORT INFORMATION
  Report Type: 
  Country: None (occurrence: None)
  Receive Date: 20100823
  Receipt Date: 20100811
  Transmission Date: 20110219
  Serious: Yes (Other)
  Sender: FDA-Public Use
  Company Number: PHHY2010JP52711

PATIENT

DRUGS (3)
  1. NEORAL [Suspect]
     Indication: COLITIS ULCERATIVE
     Dosage: 300 MG/DAY
     Route: 048
  2. NEORAL [Suspect]
     Dosage: 200 MG/DAY
     Route: 048
  3. IMURAN [Concomitant]
     Route: 048

REACTIONS (2)
  - NEUTROPHIL COUNT DECREASED [None]
  - WHITE BLOOD CELL COUNT INCREASED [None]
